FAERS Safety Report 5898796-5 (Version None)
Quarter: 2008Q3

REPORT INFORMATION
  Report Type: 
  Country: None (occurrence: None)
  Receive Date: 20080925
  Receipt Date: 20080620
  Transmission Date: 20090109
  Serious: No
  Sender: FDA-Public Use
  Company Number: A0734152A

PATIENT
  Age: 63 Year
  Sex: Female

DRUGS (13)
  1. WELLBUTRIN XL [Suspect]
     Indication: DEPRESSION
     Dosage: 300MG PER DAY
     Route: 048
     Dates: start: 20070101
  2. OMEPRAZOLE [Concomitant]
  3. TEMAZEPAM [Concomitant]
  4. FOLIC ACID [Concomitant]
  5. CITALOPRAM HYDROBROMIDE [Concomitant]
  6. BACLOFEN [Concomitant]
  7. ATENOLOL [Concomitant]
  8. SIMVASTATIN [Concomitant]
  9. HYDROXYZINE [Concomitant]
  10. PAMOATE PIRANTEL [Concomitant]
  11. CITRICAL+D [Concomitant]
  12. CINNAMON [Concomitant]
     Route: 048
  13. MULTI-VITAMIN [Concomitant]

REACTIONS (1)
  - DRUG INEFFECTIVE [None]
